FAERS Safety Report 9153878 (Version 1)
Quarter: 2013Q1

REPORT INFORMATION
  Report Type: Spontaneous
  Country: US (occurrence: US)
  Receive Date: 20130311
  Receipt Date: 20130311
  Transmission Date: 20140127
  Serious: No
  Sender: FDA-Public Use
  Company Number: US-BAYER-2013-019128

PATIENT
  Age: 54 Year
  Sex: Female
  Weight: 59.86 kg

DRUGS (16)
  1. BETASERON [Suspect]
     Dosage: 0.3 MG, QOD
     Route: 058
  2. BACLOFEN [Concomitant]
     Dosage: 10 MG, UNK
  3. TIZANIDINE [Concomitant]
     Dosage: 2 MG, UNK
  4. FLOMAX [TAMSULOSIN HYDROCHLORIDE] [Concomitant]
     Dosage: 0.4 MG, UNK
  5. CITRUCEL [Concomitant]
     Dosage: 500 MG, UNK
  6. MIRALAX [Concomitant]
     Dosage: UNK
  7. MILK OF MAGNESIA [Concomitant]
  8. CRANBERRY [Concomitant]
  9. PSEUDOEPHEDRINE [Concomitant]
     Dosage: 30 MG, UNK
  10. ASMANEX [Concomitant]
     Dosage: 220 ?G, UNK
  11. PROVIGIL [Concomitant]
     Dosage: 100 MG, UNK
  12. PROVENTIL [Concomitant]
     Dosage: 90 ?G, UNK
  13. SINGULAIR [Concomitant]
     Dosage: 10 MG, UNK
  14. WESTHROID [Concomitant]
     Dosage: 30 MG, UNK
  15. FLONASE [Concomitant]
     Dosage: 0.05 %, UNK
  16. UREALAC [Concomitant]
     Dosage: 50 %, UNK

REACTIONS (5)
  - Sinusitis [Recovered/Resolved]
  - Injection site rash [Unknown]
  - Injection site discolouration [Unknown]
  - Injection site pain [Unknown]
  - Drug dose omission [Recovered/Resolved]
